FAERS Safety Report 21668815 (Version 3)
Quarter: 2023Q1

REPORT INFORMATION
  Report Type: Report from Study
  Country: PL (occurrence: None)
  Receive Date: 20221201
  Receipt Date: 20230316
  Transmission Date: 20230417
  Serious: Yes (Hospitalization)
  Sender: FDA-Public Use
  Company Number: PL-Eisai Medical Research-EC-2022-126916

PATIENT
  Age: 62 Year
  Sex: Male
  Weight: 96 kg

DRUGS (15)
  1. LENVATINIB [Suspect]
     Active Substance: LENVATINIB
     Indication: Clear cell renal cell carcinoma
     Route: 048
     Dates: start: 20220318, end: 20221124
  2. PEMBROLIZUMAB [Suspect]
     Active Substance: PEMBROLIZUMAB
     Indication: Clear cell renal cell carcinoma
     Route: 041
     Dates: start: 20220318, end: 20220916
  3. PEMBROLIZUMAB [Suspect]
     Active Substance: PEMBROLIZUMAB
     Route: 041
     Dates: start: 20221116
  4. METOPROLOL TARTRATE [Concomitant]
     Active Substance: METOPROLOL TARTRATE
     Dates: start: 200901
  5. TAMSULOSIN HYDROCHLORIDE [Concomitant]
     Active Substance: TAMSULOSIN HYDROCHLORIDE
     Dates: start: 202001
  6. METHIMAZOLE [Concomitant]
     Active Substance: METHIMAZOLE
     Dates: start: 20220805
  7. LISIPROL HCT [Concomitant]
     Dates: start: 20220322
  8. CLEMASTINE [Concomitant]
     Active Substance: CLEMASTINE
     Dates: start: 20220409
  9. AMLODIPINE BESYLATE [Concomitant]
     Active Substance: AMLODIPINE BESYLATE
     Dates: start: 20220512
  10. LOPERAMIDE [Concomitant]
     Active Substance: LOPERAMIDE
     Dates: start: 20220725, end: 20221020
  11. PREDNISONE [Concomitant]
     Active Substance: PREDNISONE
     Dates: start: 20220809
  12. BIOMARINE 1140 [Concomitant]
     Dates: start: 202208
  13. NO SPA MAX [Concomitant]
     Dates: start: 20221018, end: 20221020
  14. METAMIZOLE SODIUM [Concomitant]
     Active Substance: METAMIZOLE SODIUM
     Dates: start: 20221018, end: 20221020
  15. GASTROLIT [Concomitant]
     Dates: start: 20221018, end: 20221020

REACTIONS (3)
  - Diverticulum [Recovered/Resolved]
  - Colonic abscess [Recovered/Resolved]
  - Appendicitis [Recovered/Resolved]

NARRATIVE: CASE EVENT DATE: 20221025
